FAERS Safety Report 8983118 (Version 1)
Quarter: 2012Q4

REPORT INFORMATION
  Report Type: 
  Country: IT (occurrence: IT)
  Receive Date: 20121224
  Receipt Date: 20121224
  Transmission Date: 20130627
  Serious: Yes (Death, Hospitalization)
  Sender: FDA-Public Use
  Company Number: PHHY2012IT118409

PATIENT
  Age: 79 Year
  Sex: Female

DRUGS (2)
  1. ZOMETA [Suspect]
     Indication: MULTIPLE MYELOMA
     Dosage: 4 mg, monthly
     Route: 042
     Dates: start: 20020422, end: 20050301
  2. AREDIA [Suspect]
     Indication: MULTIPLE MYELOMA
     Dosage: 90 mg, monthly
     Route: 042
     Dates: start: 20001121, end: 20020225

REACTIONS (2)
  - Plasma cell myeloma [Fatal]
  - Osteonecrosis of jaw [Recovered/Resolved]
